FAERS Safety Report 9008879 (Version 1)
Quarter: 2013Q1

REPORT INFORMATION
  Report Type: Spontaneous
  Country: US (occurrence: US)
  Receive Date: 20130111
  Receipt Date: 20130111
  Transmission Date: 20140127
  Serious: Yes (Death, Hospitalization)
  Sender: FDA-Public Use
  Company Number: US-009507513-1301USA003053

PATIENT
  Age: 63 Year
  Sex: Male

DRUGS (6)
  1. SINGULAIR [Suspect]
     Route: 048
  2. SPIRIVA [Suspect]
  3. CRESTOR [Suspect]
  4. COMBIVENT [Suspect]
  5. ALTACE [Suspect]
  6. ALBUTEROL [Suspect]

REACTIONS (2)
  - Death [Fatal]
  - Adverse event [Fatal]
